FAERS Safety Report 8900949 (Version 1)
Quarter: 2012Q4

REPORT INFORMATION
  Report Type: 
  Country: PL (occurrence: PL)
  Receive Date: 20121109
  Receipt Date: 20121109
  Transmission Date: 20130627
  Serious: Yes (Hospitalization)
  Sender: FDA-Public Use
  Company Number: PL-MYLANLABS-2012S1022598

PATIENT
  Age: 30 Year
  Sex: Female

DRUGS (2)
  1. PHENTERMINE [Suspect]
     Indication: WEIGHT CONTROL
     Route: 065
  2. ANAGRELIDE [Suspect]
     Indication: ESSENTIAL THROMBOCYTHAEMIA
     Dosage: 2 mg/day
     Route: 065

REACTIONS (1)
  - Stress cardiomyopathy [Recovered/Resolved]
